FAERS Safety Report 8290021-3 (Version None)
Quarter: 2012Q2

REPORT INFORMATION
  Report Type: 
  Country: None (occurrence: None)
  Receive Date: 20120417
  Receipt Date: 20120403
  Transmission Date: 20120825
  Serious: Yes (Hospitalization)
  Sender: FDA-Public Use
  Company Number: CH-AMGEN-KDC422263

PATIENT
  Age: 63 Year
  Sex: Male

DRUGS (7)
  1. LOPERAMIDE HCL [Concomitant]
     Dosage: UNK UNK, UNK
     Route: 048
     Dates: start: 20100428
  2. CAPECITABINE [Concomitant]
     Indication: COLORECTAL CANCER
     Dosage: 3 G, UNK
     Route: 048
     Dates: start: 20100201
  3. POTASSIUM CHLORIDE [Concomitant]
     Dosage: 50 MMOL, UNK
     Route: 048
     Dates: start: 20100428
  4. BISOPROLOL FUMARATE [Concomitant]
     Dosage: 2.5 MG, UNK
     Route: 048
     Dates: start: 20100115
  5. PANTOPRAZOLE [Concomitant]
     Dosage: 20 MG, UNK
     Route: 048
     Dates: start: 20100428
  6. PANITUMUMAB [Suspect]
     Indication: COLORECTAL CANCER
     Dosage: 390 MG, Q2WK
     Dates: start: 20100125
  7. CANDESARTAN CILEXETIL [Concomitant]
     Dosage: 16 MG, UNK
     Route: 048
     Dates: start: 20100115

REACTIONS (2)
  - HAEMATOMA INFECTION [None]
  - GASTROINTESTINAL ANASTOMOTIC LEAK [None]
